FAERS Safety Report 22336870 (Version 1)
Quarter: 2023Q2

REPORT INFORMATION
  Report Type: Spontaneous
  Country: US (occurrence: None)
  Receive Date: 20230518
  Receipt Date: 20230518
  Transmission Date: 20230721
  Serious: No
  Sender: FDA-Public Use
  Company Number: US-ROCHE-3163375

PATIENT
  Sex: Female

DRUGS (16)
  1. ACTEMRA [Suspect]
     Active Substance: TOCILIZUMAB
     Indication: Body mass index
     Dosage: STRENGTH: 162MG/0.9ML
     Route: 058
     Dates: start: 202112, end: 202207
  2. ACTEMRA [Suspect]
     Active Substance: TOCILIZUMAB
  3. BENADRYL (UNK COUNTRY) [Concomitant]
  4. BUPROPION [Concomitant]
     Active Substance: BUPROPION
  5. CLOBETASOL [Concomitant]
     Active Substance: CLOBETASOL
  6. LORATADINE [Concomitant]
     Active Substance: LORATADINE
  7. LYRICA [Concomitant]
     Active Substance: PREGABALIN
  8. OTEZLA [Concomitant]
     Active Substance: APREMILAST
  9. PANTOPRAZOLE [Concomitant]
     Active Substance: PANTOPRAZOLE
  10. SINGULAIR [Concomitant]
     Active Substance: MONTELUKAST SODIUM
  11. AMITRIPTYLINE HYDROCHLORIDE [Concomitant]
     Active Substance: AMITRIPTYLINE HYDROCHLORIDE
  12. FOLIC ACID [Concomitant]
     Active Substance: FOLIC ACID
  13. LISINOPRIL [Concomitant]
     Active Substance: LISINOPRIL
  14. TOVIAZ [Concomitant]
     Active Substance: FESOTERODINE FUMARATE
  15. VITAMIN B12 [Concomitant]
     Active Substance: CYANOCOBALAMIN
  16. VITAMIN D [Concomitant]
     Active Substance: VITAMIN D NOS

REACTIONS (2)
  - Drug ineffective [Unknown]
  - No adverse event [Unknown]
